FAERS Safety Report 11195523 (Version 1)
Quarter: 2015Q2

REPORT INFORMATION
  Report Type: Spontaneous
  Country: CA (occurrence: CA)
  Receive Date: 20150617
  Receipt Date: 20150617
  Transmission Date: 20150821
  Serious: Yes (Life-Threatening, Hospitalization, Other)
  Sender: FDA-Public Use
  Company Number: CA-TEVA-571015ACC

PATIENT
  Age: 73 Year
  Sex: Male
  Weight: 82 kg

DRUGS (12)
  1. EZETROL [Concomitant]
     Active Substance: EZETIMIBE
     Dosage: UNKNOWN FORM STRENGTH
     Route: 065
  2. OMEGA - 3 [Concomitant]
     Dosage: UNKNOWN FORM STRENGTH
     Route: 065
  3. VOLTAREN [Concomitant]
     Active Substance: DICLOFENAC SODIUM
     Dosage: UNKNOWN FORM STRENGTH
     Route: 065
  4. ZOLOFT CAP 100MG [Concomitant]
  5. ACCUPRIL TAB 20MG [Concomitant]
     Route: 065
  6. ASAPHEN E.C. [Concomitant]
     Dosage: UNKNOWN FORM STRENGTH
     Route: 065
  7. DEXILANT [Concomitant]
     Active Substance: DEXLANSOPRAZOLE
     Dosage: UNKNOWN FORM STRENGTH
     Route: 065
  8. LIPITOR [Concomitant]
     Active Substance: ATORVASTATIN CALCIUM
     Dosage: UNKNOWN FORM STRENGTH
     Route: 065
  9. NASONEX [Concomitant]
     Active Substance: MOMETASONE FUROATE
     Dosage: UNKNOWN FORM STRENGTH
     Route: 065
  10. ACTOS (30MG) [Concomitant]
     Route: 065
  11. GLUCOPHAGE [Concomitant]
     Active Substance: METFORMIN HYDROCHLORIDE
     Dosage: UNKNOWN FORM STRENGTH
     Route: 065
  12. QUININE [Suspect]
     Active Substance: QUININE
     Indication: MUSCLE SPASMS
     Dosage: 1 DOSAGE FORMS DAILY;
     Route: 048

REACTIONS (5)
  - Atrioventricular block [Unknown]
  - Systolic dysfunction [Unknown]
  - Dyspnoea exertional [Unknown]
  - Oedema peripheral [Unknown]
  - Ejection fraction decreased [Unknown]
